FAERS Safety Report 6567854-4 (Version None)
Quarter: 2010Q1

REPORT INFORMATION
  Report Type: 
  Country: None (occurrence: None)
  Receive Date: 20100203
  Receipt Date: 20100125
  Transmission Date: 20100710
  Serious: Yes (Hospitalization)
  Sender: FDA-Public Use
  Company Number: FR-JNJFOC-20100111041

PATIENT
  Sex: Female

DRUGS (15)
  1. DURAGESIC-100 [Suspect]
     Indication: PAIN
     Route: 062
     Dates: start: 20080915, end: 20081004
  2. HYDROCORTISONE [Concomitant]
     Route: 048
  3. FLUINDIONE [Concomitant]
     Route: 048
  4. KARDEGIC [Concomitant]
     Route: 048
  5. DIGITALINE NATIVELLE [Concomitant]
     Route: 048
  6. ENALAPRIL MALEATE [Concomitant]
     Route: 048
  7. ZOLOFT [Concomitant]
     Route: 048
  8. SODIUM FUSIDATE [Concomitant]
     Route: 048
     Dates: start: 20071201
  9. INIPOMP [Concomitant]
     Route: 048
  10. LEVOTHYROXINE SODIUM [Concomitant]
     Route: 048
  11. VASTAREL [Concomitant]
     Route: 048
  12. TARDYFERON [Concomitant]
     Route: 048
  13. SPECIAFOLDINE [Concomitant]
     Route: 048
  14. IDEOS [Concomitant]
     Route: 048
  15. CARBOMER [Concomitant]
     Route: 047

REACTIONS (2)
  - CONFUSIONAL STATE [None]
  - NEUROPSYCHIATRIC LUPUS [None]
